FAERS Safety Report 25218091 (Version 2)
Quarter: 2025Q2

REPORT INFORMATION
  Report Type: Report from Study
  Country: CA (occurrence: CA)
  Receive Date: 20250421
  Receipt Date: 20250430
  Transmission Date: 20250717
  Serious: Yes (Hospitalization, Other)
  Sender: BOEHRINGER INGELHEIM
  Company Number: CA-BoehringerIngelheim-2025-BI-011587

PATIENT
  Age: 77 Year
  Sex: Male

DRUGS (1)
  1. OFEV [Suspect]
     Active Substance: NINTEDANIB
     Indication: Idiopathic pulmonary fibrosis
     Dates: start: 20240705, end: 20250328

REACTIONS (7)
  - Influenza [Recovering/Resolving]
  - Cervical vertebral fracture [Recovered/Resolved]
  - Hallucination [Recovered/Resolved]
  - Neck pain [Recovering/Resolving]
  - Cough [Recovering/Resolving]
  - Fall [Recovering/Resolving]
  - Skin laceration [Recovering/Resolving]

NARRATIVE: CASE EVENT DATE: 20250224
